FAERS Safety Report 24386237 (Version 1)
Quarter: 2024Q4

REPORT INFORMATION
  Report Type: Spontaneous
  Country: US (occurrence: US)
  Receive Date: 20241001
  Receipt Date: 20241001
  Transmission Date: 20250115
  Serious: Yes (Death, Other)
  Sender: MERCK
  Company Number: US-009507513-2409USA009759

PATIENT
  Age: 80 Year
  Sex: Female

DRUGS (1)
  1. KEYTRUDA [Suspect]
     Active Substance: PEMBROLIZUMAB
     Indication: Renal cell carcinoma stage III
     Dosage: 200 MILLIGRAM, EVERY 21 DAYS (Q3W)

REACTIONS (2)
  - Myasthenia gravis [Fatal]
  - Myocarditis [Unknown]
